FAERS Safety Report 14021871 (Version 1)
Quarter: 2017Q3

REPORT INFORMATION
  Report Type: Spontaneous
  Country: US (occurrence: US)
  Receive Date: 20170928
  Receipt Date: 20170928
  Transmission Date: 20171128
  Serious: Yes (Other)
  Sender: FDA-Public Use
  Company Number: None

PATIENT
  Age: 9 Year
  Sex: Female
  Weight: 22.5 kg

DRUGS (1)
  1. GADAVIST [Suspect]
     Active Substance: GADOBUTROL
     Indication: SCAN WITH CONTRAST
     Dosage: ?          QUANTITY:1 INJECTION(S);OTHER FREQUENCY:ONCE DURING EXAM;?INTRAVENOUS (NOT OTHERWISE SPECIFIED)
     Route: 042

REACTIONS (4)
  - Urticaria [None]
  - Pruritus [None]
  - Swelling face [None]
  - Hypersensitivity [None]

NARRATIVE: CASE EVENT DATE: 20170927
